FAERS Safety Report 8473024-5 (Version None)
Quarter: 2012Q2

REPORT INFORMATION
  Report Type: 
  Country: None (occurrence: None)
  Receive Date: 20120627
  Receipt Date: 20120620
  Transmission Date: 20120825
  Serious: Yes (Hospitalization, Other)
  Sender: FDA-Public Use
  Company Number: DE-UCBSA-060195

PATIENT
  Age: 23 Year
  Sex: Male
  Weight: 65 kg

DRUGS (8)
  1. CLORAZEPATE DIPOTASSIUM [Concomitant]
  2. NPLATE [Interacting]
     Indication: IDIOPATHIC THROMBOCYTOPENIC PURPURA
     Dosage: 3-4 MCG/KG BODY WEIGHT
     Route: 058
     Dates: start: 20100401
  3. NPLATE [Interacting]
     Dosage: DOSE INCREASED
     Route: 058
     Dates: start: 20110601
  4. NPLATE [Interacting]
     Route: 058
     Dates: start: 20120101
  5. VIMPAT [Suspect]
     Indication: EPILEPSY
     Route: 048
  6. KEPPRA [Concomitant]
  7. PANTOPRAZOLE [Concomitant]
  8. LEVOTHYROXINE SODIUM [Concomitant]

REACTIONS (3)
  - DRUG INTERACTION [None]
  - PLATELET COUNT ABNORMAL [None]
  - PLATELET COUNT DECREASED [None]
